FAERS Safety Report 8443167-0 (Version None)
Quarter: 2012Q2

REPORT INFORMATION
  Report Type: 
  Country: None (occurrence: None)
  Receive Date: 20120616
  Receipt Date: 20120604
  Transmission Date: 20120825
  Serious: Yes (Hospitalization, Other)
  Sender: FDA-Public Use
  Company Number: US-ACCORD-013747

PATIENT
  Sex: Female

DRUGS (2)
  1. SIMVASTATIN [Suspect]
     Dates: end: 20120409
  2. SIMVASTATIN [Suspect]
     Dates: start: 20120409, end: 20120507

REACTIONS (5)
  - OEDEMA [None]
  - BLOOD POTASSIUM DECREASED [None]
  - PANCREATITIS ACUTE [None]
  - BLOOD MAGNESIUM DECREASED [None]
  - HAEMOGLOBIN DECREASED [None]
